FAERS Safety Report 8124122-7 (Version None)
Quarter: 2012Q1

REPORT INFORMATION
  Report Type: 
  Country: None (occurrence: None)
  Receive Date: 20120209
  Receipt Date: 20120202
  Transmission Date: 20120608
  Serious: Yes (Hospitalization)
  Sender: FDA-Public Use
  Company Number: JP-JNJFOC-20111003576

PATIENT
  Age: 51 Year
  Sex: Male

DRUGS (5)
  1. INVEGA [Suspect]
     Indication: SCHIZOPHRENIA
     Route: 048
     Dates: start: 20110629
  2. LENDORMIN [Concomitant]
     Indication: SLEEP DISORDER
     Route: 048
  3. NITRAZEPAM [Concomitant]
     Indication: SLEEP DISORDER
     Route: 048
     Dates: start: 20110928
  4. INVEGA [Suspect]
     Route: 048
     Dates: start: 20110623, end: 20110628
  5. DOGMATYL [Concomitant]
     Route: 065

REACTIONS (2)
  - RHABDOMYOLYSIS [None]
  - INSOMNIA [None]
